FAERS Safety Report 5455056-4 (Version None)
Quarter: 2007Q3

REPORT INFORMATION
  Report Type: 
  Country: None (occurrence: None)
  Receive Date: 20070913
  Receipt Date: 20070831
  Transmission Date: 20080115
  Serious: Yes (Hospitalization)
  Sender: FDA-Public Use
  Company Number: DSM-2007-00651

PATIENT
  Sex: Female

DRUGS (8)
  1. OLMESARTAN MEDOXOMIL [Suspect]
     Indication: HYPERTENSION
     Dosage: (1 IN 1 D), ORAL
     Route: 048
     Dates: start: 20070221
  2. FLECAINIDE ACETATE [Suspect]
     Indication: EXTRASYSTOLES
     Dates: start: 20070221, end: 20070328
  3. PLAQUENIL                             (HYDROXYCHOLOROQUINE SULFATE) [Suspect]
     Indication: CUTANEOUS LUPUS ERYTHEMATOSUS
     Dosage: ORAL
     Route: 048
     Dates: start: 20070227, end: 20070303
  4. CORDARONE [Suspect]
     Indication: ATRIAL FIBRILLATION
     Dosage: ORAL
     Route: 048
     Dates: end: 20070222
  5. IRBESARTAN [Concomitant]
  6. FENOFIBRATE [Concomitant]
  7. CERVOXAN                   (VINBURNINE) [Concomitant]
  8. GINKOR                      (TROXERUTIN, GINKGO BILOBA EXTRACT) [Concomitant]

REACTIONS (3)
  - DERMATITIS EXFOLIATIVE [None]
  - LUPUS-LIKE SYNDROME [None]
  - MALAISE [None]
